FAERS Safety Report 9054255 (Version 7)
Quarter: 2014Q1

REPORT INFORMATION
  Report Type: Spontaneous
  Country: US (occurrence: US)
  Receive Date: 20130208
  Receipt Date: 20140123
  Transmission Date: 20141002
  Serious: Yes (Death, Hospitalization)
  Sender: FDA-Public Use
  Company Number: US-GLAXOSMITHKLINE-A1011309A

PATIENT
  Sex: Male

DRUGS (3)
  1. FLOLAN [Suspect]
     Indication: PULMONARY ARTERIAL HYPERTENSION
     Dosage: 6NGKM CONTINUOUS
     Route: 042
     Dates: start: 20130109
  2. REVATIO [Concomitant]
  3. TRACLEER [Concomitant]

REACTIONS (13)
  - Medical device complication [Unknown]
  - Adverse event [Unknown]
  - Diarrhoea [Not Recovered/Not Resolved]
  - Drug ineffective [Unknown]
  - Condition aggravated [Not Recovered/Not Resolved]
  - Fluid retention [Unknown]
  - Decubitus ulcer [Unknown]
  - Skin infection [Unknown]
  - Viral infection [Unknown]
  - Haemoptysis [Unknown]
  - Catheterisation cardiac [Unknown]
  - Hypotension [Unknown]
  - Death [Fatal]
